FAERS Safety Report 11023335 (Version 2)
Quarter: 2015Q2

REPORT INFORMATION
  Report Type: Spontaneous
  Country: US (occurrence: US)
  Receive Date: 20150413
  Receipt Date: 20150520
  Transmission Date: 20150821
  Serious: No
  Sender: FDA-Public Use
  Company Number: US-PFIZER INC-2015123644

PATIENT
  Age: 54 Year
  Sex: Female

DRUGS (3)
  1. LYRICA [Suspect]
     Active Substance: PREGABALIN
     Dosage: 75 MG, UNK
     Dates: start: 2010
  2. LYRICA [Suspect]
     Active Substance: PREGABALIN
     Dosage: 50 MG, 1X/DAY AT NIGHT
     Dates: start: 2010
  3. LYRICA [Suspect]
     Active Substance: PREGABALIN
     Indication: INTERVERTEBRAL DISC DEGENERATION
     Dosage: 50 MG, UNK, (1-2 DAY)
     Dates: start: 2010

REACTIONS (6)
  - Gait disturbance [Unknown]
  - Vision blurred [Unknown]
  - Balance disorder [Not Recovered/Not Resolved]
  - Impaired driving ability [Unknown]
  - Feeling abnormal [Unknown]
  - Fall [Unknown]
